FAERS Safety Report 5217760-2 (Version None)
Quarter: 2007Q1

REPORT INFORMATION
  Report Type: 
  Country: None (occurrence: None)
  Receive Date: 20061130
  Receipt Date: 20060815
  Transmission Date: 20070707
  Serious: Yes (Hospitalization)
  Sender: FDA-Public Use
  Company Number: US200608004010

PATIENT
  Age: 49 Year
  Sex: Male
  Weight: 79.4 kg

DRUGS (4)
  1. ZYPREXA [Suspect]
     Dosage: 15 MG, DAILY (1/D); 20 MG, DAILY (1/D); 20 MG, DAILY (1/D)
     Dates: start: 20031101, end: 20050701
  2. ZYPREXA [Suspect]
     Dosage: 15 MG, DAILY (1/D); 20 MG, DAILY (1/D); 20 MG, DAILY (1/D)
     Dates: start: 20000501
  3. PAROXETINE HCL [Concomitant]
  4. VENLFAXINE (VENLAFAXINE) [Concomitant]

REACTIONS (7)
  - BLOOD CHOLESTEROL ABNORMAL [None]
  - BLOOD TRIGLYCERIDES INCREASED [None]
  - DIABETES MELLITUS [None]
  - HYPERGLYCAEMIA [None]
  - HYPERTENSION [None]
  - HYPOGLYCAEMIA [None]
  - METABOLIC DISORDER [None]
